FAERS Safety Report 19478737 (Version 2)
Quarter: 2021Q3

REPORT INFORMATION
  Report Type: Spontaneous
  Country: CO (occurrence: CO)
  Receive Date: 20210630
  Receipt Date: 20210816
  Transmission Date: 20211014
  Serious: No
  Sender: FDA-Public Use
  Company Number: CO-PFIZER INC-2021676669

PATIENT
  Age: 55 Year
  Sex: Female

DRUGS (3)
  1. ENBREL [Suspect]
     Active Substance: ETANERCEPT
     Indication: RHEUMATOID ARTHRITIS
     Dosage: 50 MG, EVERY 8 DAYS
     Route: 058
     Dates: start: 2018
  2. ENBREL [Suspect]
     Active Substance: ETANERCEPT
     Dosage: 50 MG, EVERY 8 DAYS
     Route: 058
  3. ENBREL [Suspect]
     Active Substance: ETANERCEPT
     Dosage: 50 MG
     Route: 058
     Dates: start: 20181031

REACTIONS (10)
  - Inflammation [Unknown]
  - Illness [Unknown]
  - Bone pain [Unknown]
  - Arthralgia [Unknown]
  - Off label use [Unknown]
  - Pain [Unknown]
  - Drug dose omission by device [Unknown]
  - Pain in extremity [Unknown]
  - Device failure [Unknown]
  - Wrong technique in device usage process [Unknown]

NARRATIVE: CASE EVENT DATE: 2018
